FAERS Safety Report 5393338-5 (Version None)
Quarter: 2007Q3

REPORT INFORMATION
  Report Type: 
  Country: None (occurrence: None)
  Receive Date: 20070723
  Receipt Date: 20070712
  Transmission Date: 20080115
  Serious: Yes (Other)
  Sender: FDA-Public Use
  Company Number: PHEH2007US06810

PATIENT
  Age: 32 Year
  Sex: Female
  Weight: 82.993 kg

DRUGS (1)
  1. ZELNORM [Suspect]
     Indication: CONSTIPATION
     Dosage: 6 MG, BID
     Route: 048
     Dates: start: 20060719, end: 20070503

REACTIONS (6)
  - ABDOMINAL PAIN [None]
  - COLD SWEAT [None]
  - DRY MOUTH [None]
  - ENDOSCOPY ABNORMAL [None]
  - NAUSEA [None]
  - STOMACH DISCOMFORT [None]
